FAERS Safety Report 15759319 (Version 2)
Quarter: 2019Q1

REPORT INFORMATION
  Report Type: Report from Study
  Country: None (occurrence: US)
  Receive Date: 20181226
  Receipt Date: 20190314
  Transmission Date: 20190417
  Serious: Yes (Hospitalization)
  Sender: FDA-Public Use
  Company Number: US-INSMED, INC.-US-INS-18-00304

PATIENT
  Age: 58 Year
  Sex: Female

DRUGS (3)
  1. LAMIRA NEBULIZER SYSTEM [Suspect]
     Active Substance: DEVICE
  2. ARIKAYCE [Suspect]
     Active Substance: AMIKACIN
     Indication: MYCOBACTERIUM AVIUM COMPLEX INFECTION
     Route: 055
     Dates: end: 20181213
  3. ARIKAYCE [Suspect]
     Active Substance: AMIKACIN
     Route: 055
     Dates: start: 20190124

REACTIONS (3)
  - Headache [Not Recovered/Not Resolved]
  - Oropharyngeal pain [Not Recovered/Not Resolved]
  - Infective exacerbation of bronchiectasis [Recovering/Resolving]

NARRATIVE: CASE EVENT DATE: 20181128
